FAERS Safety Report 9057874 (Version 1)
Quarter: 2013Q1

REPORT INFORMATION
  Report Type: Spontaneous
  Country: US (occurrence: US)
  Receive Date: 20130210
  Receipt Date: 20130210
  Transmission Date: 20140127
  Serious: Yes (Other)
  Sender: FDA-Public Use
  Company Number: US-BRISTOL-MYERS SQUIBB COMPANY-17209206

PATIENT
  Age: 66 Year
  Sex: Female

DRUGS (1)
  1. ORENCIA [Suspect]
     Dosage: LAST DOSE WAS 6WKS AGO
     Route: 042
     Dates: start: 201207

REACTIONS (1)
  - Bronchiolitis [Unknown]
